FAERS Safety Report 18520311 (Version 2)
Quarter: 2021Q1

REPORT INFORMATION
  Report Type: Other
  Country: BR (occurrence: BR)
  Receive Date: 20201118
  Receipt Date: 20210324
  Transmission Date: 20210419
  Serious: Yes (Other)
  Sender: FDA-Public Use
  Company Number: BR-ROCHE-2715089

PATIENT
  Age: 71 Year
  Sex: Female

DRUGS (4)
  1. XOLAIR [Suspect]
     Active Substance: OMALIZUMAB
     Indication: ASTHMA
     Route: 065
     Dates: end: 20201104
  2. XOLAIR [Suspect]
     Active Substance: OMALIZUMAB
     Dosage: UNKNOWN DOSE 1 TIME EVERY 15 DAYS
     Route: 065
     Dates: end: 20201104
  3. ALENIA (BRAZIL) [Concomitant]
     Active Substance: BUDESONIDE\FORMOTEROL FUMARATE
     Indication: PRODUCT USED FOR UNKNOWN INDICATION
     Dosage: UNK
     Route: 065
  4. PREDNISONE. [Concomitant]
     Active Substance: PREDNISONE

REACTIONS (15)
  - General physical health deterioration [Unknown]
  - Wheezing [Recovered/Resolved]
  - Rhinitis [Recovering/Resolving]
  - Malaise [Recovered/Resolved]
  - Catarrh [Recovered/Resolved]
  - Fatigue [Recovered/Resolved]
  - Sneezing [Recovering/Resolving]
  - Pneumonia [Recovered/Resolved]
  - Product dose omission issue [Unknown]
  - Asthmatic crisis [Recovered/Resolved]
  - Dyspnoea exertional [Unknown]
  - Fatigue [Unknown]
  - Cough [Recovered/Resolved]
  - Nasal pruritus [Recovering/Resolving]
  - Drug ineffective [Unknown]

NARRATIVE: CASE EVENT DATE: 202008
